FAERS Safety Report 5901609-6 (Version None)
Quarter: 2008Q3

REPORT INFORMATION
  Report Type: 
  Country: None (occurrence: None)
  Receive Date: 20080926
  Receipt Date: 20080926
  Transmission Date: 20090109
  Serious: Yes (Other)
  Sender: FDA-Public Use
  Company Number: None

PATIENT
  Age: 22 Year
  Sex: Female
  Weight: 77.1115 kg

DRUGS (1)
  1. TREXIMET [Suspect]
     Indication: MIGRAINE
     Dosage: 1 PILL PO
     Route: 048
     Dates: start: 20080924, end: 20080924

REACTIONS (8)
  - BURNING SENSATION [None]
  - DISCOMFORT [None]
  - DYSPNOEA [None]
  - PALPITATIONS [None]
  - PHARYNGEAL OEDEMA [None]
  - PRURITUS [None]
  - PULSE ABNORMAL [None]
  - SWOLLEN TONGUE [None]
